FAERS Safety Report 4708427-5 (Version None)
Quarter: 2005Q3

REPORT INFORMATION
  Report Type: 
  Country: None (occurrence: None)
  Receive Date: 20050705
  Receipt Date: 20050627
  Transmission Date: 20060218
  Serious: Yes (Disabling)
  Sender: FDA-Public Use
  Company Number: FRWYE777727JUN05

PATIENT
  Age: 1 Day
  Sex: Male

DRUGS (6)
  1. EFFEXOR [Suspect]
     Indication: DEPRESSION
     Dosage: ORAL
     Route: 048
     Dates: end: 20020501
  2. AMITRIPTYLINE HCL [Suspect]
     Indication: DEPRESSION
     Dosage: ORAL
     Route: 048
     Dates: end: 20020501
  3. OXAZEPAM [Suspect]
     Indication: DEPRESSION
     Dosage: ORAL
     Route: 048
     Dates: start: 20020501, end: 20030118
  4. ZOLPIDEM TARTRATE [Suspect]
     Indication: DEPRESSION
     Dosage: ORAL
     Route: 048
     Dates: end: 20020501
  5. XANAX [Suspect]
     Indication: DEPRESSION
     Dosage: ORAL
     Route: 048
     Dates: start: 20020501, end: 20030118
  6. EUPHYTOSE (BALLOTI EXTRACT/CRATAEGUS EXTRACT/DOLA/PASSIFLORA EXTRACT/P [Concomitant]

REACTIONS (15)
  - CEREBRAL ATROPHY CONGENITAL [None]
  - CONGENITAL ANOMALY [None]
  - CONGENITAL CENTRAL NERVOUS SYSTEM ANOMALY [None]
  - CONGENITAL HAIR DISORDER [None]
  - CONGENITAL NAIL DISORDER [None]
  - DRUG EXPOSURE DURING PREGNANCY [None]
  - EPILEPSY [None]
  - FACIAL DYSMORPHISM [None]
  - FLAT FEET [None]
  - GROWTH RETARDATION [None]
  - KARYOTYPE ANALYSIS ABNORMAL [None]
  - NEONATAL DISORDER [None]
  - PHALANGEAL HYPOPLASIA [None]
  - PSYCHOMOTOR RETARDATION [None]
  - SKIN DISORDER [None]
